FAERS Safety Report 21098132 (Version 1)
Quarter: 2022Q3

REPORT INFORMATION
  Report Type: Report from Study
  Country: CN (occurrence: CN)
  Receive Date: 20220719
  Receipt Date: 20220719
  Transmission Date: 20221026
  Serious: Yes (Congenital Anomaly, Other)
  Sender: FDA-Public Use
  Company Number: CN-UCBSA-2022038343

PATIENT
  Sex: Female

DRUGS (3)
  1. LEVETIRACETAM [Suspect]
     Active Substance: LEVETIRACETAM
     Indication: Epilepsy
     Dosage: 500 MILLIGRAM, EV 2 WEEKS(QOW)
     Route: 048
  2. LAMOTRIGINE [Suspect]
     Active Substance: LAMOTRIGINE
     Indication: Epilepsy
     Dosage: 25 MILLIGRAM, ONCE DAILY (QD)
     Route: 048
  3. LAMOTRIGINE [Suspect]
     Active Substance: LAMOTRIGINE
     Dosage: MAINTENANCE DOSE WAS 100-200 MG, ONCE OR TWICE DAY
     Route: 048

REACTIONS (11)
  - Premature delivery [Unknown]
  - Gestational hypertension [Unknown]
  - Gestational diabetes [Unknown]
  - Cholestasis of pregnancy [Unknown]
  - Placenta praevia [Unknown]
  - Premature rupture of membranes [Unknown]
  - Congenital anomaly [Unknown]
  - Foetal macrosomia [Unknown]
  - Small for dates baby [Unknown]
  - Large for dates baby [Unknown]
  - Maternal exposure during pregnancy [Unknown]
